FAERS Safety Report 10860661 (Version 1)
Quarter: 2015Q1

REPORT INFORMATION
  Report Type: Spontaneous
  Country: FR (occurrence: FR)
  Receive Date: 20150224
  Receipt Date: 20150224
  Transmission Date: 20150721
  Serious: Yes (Hospitalization)
  Sender: FDA-Public Use
  Company Number: FR-ROCHE-1541299

PATIENT
  Age: 61 Year
  Sex: Female
  Weight: 101 kg

DRUGS (12)
  1. XOLAIR [Suspect]
     Active Substance: OMALIZUMAB
     Indication: ASTHMA
     Route: 058
     Dates: start: 20141203, end: 20141203
  2. XOLAIR [Suspect]
     Active Substance: OMALIZUMAB
     Route: 058
     Dates: start: 20150103
  3. SERETIDE [Concomitant]
     Active Substance: FLUTICASONE FUROATE\SALMETEROL XINAFOATE
  4. SEEBRI [Concomitant]
     Active Substance: GLYCOPYRRONIUM
  5. AVAMYS [Concomitant]
     Active Substance: FLUTICASONE FUROATE
  6. SIFROL [Concomitant]
     Active Substance: PRAMIPEXOLE
  7. CORTANCYL [Concomitant]
     Active Substance: PREDNISONE
  8. INEXIUM [Concomitant]
     Active Substance: ESOMEPRAZOLE
  9. COTAREG [Concomitant]
     Active Substance: HYDROCHLOROTHIAZIDE\VALSARTAN
  10. BRICANYL [Concomitant]
     Active Substance: TERBUTALINE SULFATE
  11. ATROVENT [Concomitant]
     Active Substance: IPRATROPIUM BROMIDE
  12. RYTHMOL [Concomitant]
     Active Substance: PROPAFENONE HYDROCHLORIDE

REACTIONS (4)
  - Asthenia [Unknown]
  - Dizziness [Recovered/Resolved]
  - Migraine [Recovered/Resolved]
  - Headache [Recovered/Resolved]

NARRATIVE: CASE EVENT DATE: 20141203
